FAERS Safety Report 8847824 (Version 1)
Quarter: 2012Q4

REPORT INFORMATION
  Report Type: 
  Country: US (occurrence: US)
  Receive Date: 20121018
  Receipt Date: 20121018
  Transmission Date: 20130627
  Serious: No
  Sender: FDA-Public Use
  Company Number: US-ASTRAZENECA-2012SE77988

PATIENT
  Age: 69 Year
  Sex: Female
  Weight: 68.9 kg

DRUGS (1)
  1. ARIMIDEX [Suspect]
     Indication: BREAST CANCER
     Route: 048
     Dates: start: 201203

REACTIONS (15)
  - Weight increased [Unknown]
  - Muscular weakness [Unknown]
  - Balance disorder [Unknown]
  - Motion sickness [Unknown]
  - Mood swings [Unknown]
  - Hostility [Unknown]
  - Dry mouth [Unknown]
  - Visual impairment [Unknown]
  - Fatigue [Unknown]
  - Insomnia [Unknown]
  - Dizziness [Unknown]
  - Nausea [Unknown]
  - Bone pain [Unknown]
  - Night sweats [Unknown]
  - Blood cholesterol increased [Unknown]
